FAERS Safety Report 7798634-X (Version None)
Quarter: 2011Q4

REPORT INFORMATION
  Report Type: 
  Country: None (occurrence: None)
  Receive Date: 20111005
  Receipt Date: 20110927
  Transmission Date: 20120403
  Serious: Yes (Hospitalization)
  Sender: FDA-Public Use
  Company Number: US-CELGENEUS-163-21880-11093476

PATIENT
  Sex: Male
  Weight: 88.076 kg

DRUGS (23)
  1. FOLIC ACID [Concomitant]
     Dosage: 1 MILLIGRAM
     Route: 048
  2. BACTRIM [Concomitant]
     Dosage: 80-400 MG
     Route: 048
  3. COMPAZINE [Concomitant]
     Indication: NAUSEA
     Dosage: 10 MILLIGRAM
     Route: 048
  4. MAGNESIUM HYDROXIDE [Concomitant]
     Indication: CONSTIPATION
     Dosage: 30 MILLILITER
     Route: 048
  5. OXYCODONE HCL [Concomitant]
     Dosage: 40 MILLIGRAM
     Route: 048
  6. POLYETHYLENE GLYCOL [Concomitant]
     Indication: CONSTIPATION
     Dosage: 17 GRAM
     Route: 048
  7. ACYCLOVIR [Concomitant]
     Dosage: 400 MILLIGRAM
     Route: 048
  8. CYANOCOBALAMIN [Concomitant]
     Dosage: 50 MICROGRAM
     Route: 048
  9. LIDOCAINE [Concomitant]
     Dosage: 10 PERCENT
     Route: 062
  10. ASPIRIN [Concomitant]
     Dosage: 81 MILLIGRAM
     Route: 048
  11. DILAUDID [Concomitant]
     Dosage: 2 MILLIGRAM
     Route: 048
  12. REGULAR INSULIN [Concomitant]
     Dosage: SLIDING SCALE
     Route: 058
  13. SENNA-MINT WAF [Concomitant]
     Indication: CONSTIPATION
     Dosage: 2 TABLET
     Route: 048
  14. BORTEZOMIB [Suspect]
     Indication: MULTIPLE MYELOMA
     Dosage: 1.3 MILLIGRAM/SQ. METER
     Route: 041
  15. DEXAMETHASONE [Suspect]
     Indication: MULTIPLE MYELOMA
     Dosage: 20 MILLIGRAM
     Route: 048
     Dates: start: 20110921
  16. COLACE [Concomitant]
     Dosage: 100 MILLIGRAM
     Route: 048
  17. LACTULOSE [Concomitant]
     Indication: CONSTIPATION
     Dosage: 30 MILLILITER
     Route: 048
  18. OXYCODONE HCL [Concomitant]
     Indication: PAIN
     Dosage: 10-15 MG
     Route: 048
  19. VITAMIN B6 [Concomitant]
     Indication: CONSTIPATION
     Dosage: 50 MILLIGRAM
     Route: 048
  20. REVLIMID [Suspect]
     Indication: MULTIPLE MYELOMA
     Dosage: 25 MILLIGRAM
     Route: 048
  21. INSULIN GLARGINE [Concomitant]
     Dosage: 10 UNITS
     Route: 058
  22. ONDANSETRON HCL [Concomitant]
     Indication: NAUSEA
     Dosage: 8 MILLIGRAM
     Route: 048
  23. OMEPRAZOLE [Concomitant]
     Dosage: 20 MILLIGRAM
     Route: 048

REACTIONS (5)
  - BACK PAIN [None]
  - HYPERKALAEMIA [None]
  - MUSCLE SPASMS [None]
  - BLOOD CREATININE INCREASED [None]
  - MUSCULAR WEAKNESS [None]
